FAERS Safety Report 16717597 (Version 7)
Quarter: 2020Q2

REPORT INFORMATION
  Report Type: Spontaneous
  Country: US (occurrence: US)
  Receive Date: 20190819
  Receipt Date: 20200505
  Transmission Date: 20200713
  Serious: Yes (Hospitalization)
  Sender: FDA-Public Use
  Company Number: US-SA-2019SA226294

PATIENT
  Age: 17 Year
  Sex: Male
  Weight: 89.34 kg

DRUGS (14)
  1. DUPIXENT [Suspect]
     Active Substance: DUPILUMAB
     Indication: DERMATITIS ATOPIC
     Dosage: 300 MG, QOW
     Route: 058
     Dates: start: 20190703
  2. AMLODIPINE BESYLATE. [Concomitant]
     Active Substance: AMLODIPINE BESYLATE
  3. OFLOXACIN. [Concomitant]
     Active Substance: OFLOXACIN
  4. LITHIUM CARBONATE. [Concomitant]
     Active Substance: LITHIUM CARBONATE
  5. HALOPERIDOL LACTATE. [Concomitant]
     Active Substance: HALOPERIDOL LACTATE
  6. ATORVASTATIN CALCIUM. [Concomitant]
     Active Substance: ATORVASTATIN CALCIUM
  7. LEUCOVORIN CALCIUM. [Concomitant]
     Active Substance: LEUCOVORIN CALCIUM
  8. DOXYCYCLINE HYCLATE. [Concomitant]
     Active Substance: DOXYCYCLINE HYCLATE
  9. RISPERIDONE. [Suspect]
     Active Substance: RISPERIDONE
     Dosage: UNK
     Dates: start: 202001
  10. LITHIUM. [Concomitant]
     Active Substance: LITHIUM
  11. CLONIDINE HCL [Concomitant]
     Active Substance: CLONIDINE HYDROCHLORIDE
  12. ALFUZOSIN HCL [Concomitant]
     Active Substance: ALFUZOSIN HYDROCHLORIDE
  13. MUPIROCIN. [Concomitant]
     Active Substance: MUPIROCIN
  14. CLOZAPINE. [Concomitant]
     Active Substance: CLOZAPINE

REACTIONS (8)
  - Therapeutic response decreased [Unknown]
  - Unevaluable event [Unknown]
  - Drug ineffective [Unknown]
  - Dermatitis atopic [Unknown]
  - Rash [Unknown]
  - Mental disorder [Unknown]
  - Product dose omission [Unknown]
  - Dermatitis infected [Recovered/Resolved]

NARRATIVE: CASE EVENT DATE: 2020
